FAERS Safety Report 9633376 (Version 1)
Quarter: 2013Q4

REPORT INFORMATION
  Report Type: Spontaneous
  Country: None (occurrence: US)
  Receive Date: 20131021
  Receipt Date: 20131021
  Transmission Date: 20140711
  Serious: No
  Sender: FDA-Public Use
  Company Number: US-BRISTOL-MYERS SQUIBB COMPANY-19073220

PATIENT
  Sex: Male

DRUGS (2)
  1. YERVOY [Suspect]
     Dosage: TOTAL:2 INFUSION
  2. COUMADIN [Suspect]

REACTIONS (2)
  - Conjunctivitis [Unknown]
  - Blood thyroid stimulating hormone increased [Unknown]
